FAERS Safety Report 6561327-0 (Version None)
Quarter: 2010Q1

REPORT INFORMATION
  Report Type: 
  Country: None (occurrence: None)
  Receive Date: 20100130
  Receipt Date: 20091019
  Transmission Date: 20100710
  Serious: No
  Sender: FDA-Public Use
  Company Number: US-ABBOTT-09P-163-0603529-00

PATIENT
  Sex: Male
  Weight: 108.96 kg

DRUGS (3)
  1. HUMIRA [Suspect]
     Indication: CROHN'S DISEASE
     Dates: start: 20090918
  2. HUMIRA [Suspect]
     Indication: COLITIS ULCERATIVE
  3. HUMIRA [Suspect]

REACTIONS (2)
  - RASH [None]
  - RASH PRURITIC [None]
